FAERS Safety Report 14413056 (Version 2)
Quarter: 2018Q1

REPORT INFORMATION
  Report Type: Spontaneous
  Country: SE (occurrence: SE)
  Receive Date: 20180119
  Receipt Date: 20180130
  Transmission Date: 20180509
  Serious: Yes (Other)
  Sender: FDA-Public Use
  Company Number: SE-TEVA-2018-SE-848015

PATIENT
  Age: 69 Year
  Sex: Female

DRUGS (3)
  1. BEHEPAN [Concomitant]
     Active Substance: HYDROXOCOBALAMIN
     Dates: start: 2015
  2. METRONIDAZOLE. [Suspect]
     Active Substance: METRONIDAZOLE
     Indication: FRACTURE INFECTION
     Dosage: 1200 MILLIGRAM DAILY;
     Route: 048
     Dates: start: 20161201
  3. HERACILLIN 1 G FILMDRAGERAD TABLETT [Concomitant]
     Dates: start: 20170223, end: 20170511

REACTIONS (1)
  - Polyneuropathy [Not Recovered/Not Resolved]

NARRATIVE: CASE EVENT DATE: 20170325
